FAERS Safety Report 20785013 (Version 1)
Quarter: 2022Q2

REPORT INFORMATION
  Report Type: Spontaneous
  Country: US (occurrence: None)
  Receive Date: 20220503
  Receipt Date: 20220503
  Transmission Date: 20220720
  Serious: No
  Sender: FDA-Public Use
  Company Number: None

PATIENT
  Age: 44 Year
  Sex: Male

DRUGS (1)
  1. STELARA [Suspect]
     Active Substance: USTEKINUMAB
     Dosage: OTHER FREQUENCY : EVERY6WEEKS ;?
     Route: 058
     Dates: start: 20170819

REACTIONS (3)
  - Therapeutic product effect decreased [None]
  - Skin fissures [None]
  - Skin fissures [None]

NARRATIVE: CASE EVENT DATE: 20220101
